FAERS Safety Report 12531335 (Version 1)
Quarter: 2016Q3

REPORT INFORMATION
  Report Type: Spontaneous
  Country: US (occurrence: US)
  Receive Date: 20160706
  Receipt Date: 20160706
  Transmission Date: 20161109
  Serious: No
  Sender: FDA-Public Use
  Company Number: US-ELI_LILLY_AND_COMPANY-US201606009453

PATIENT
  Age: 59 Year
  Sex: Male

DRUGS (4)
  1. HUMALOG [Suspect]
     Active Substance: INSULIN LISPRO
     Dosage: ALMOST 100 U, OTHER
     Route: 065
  2. HUMALOG [Suspect]
     Active Substance: INSULIN LISPRO
     Dosage: ALMOST 100 U, OTHER
     Route: 065
  3. HUMALOG [Suspect]
     Active Substance: INSULIN LISPRO
     Indication: TYPE 2 DIABETES MELLITUS
     Dosage: ALMOST 100 U, OTHER
     Route: 065
     Dates: start: 19911205
  4. LEVEMIR [Concomitant]
     Active Substance: INSULIN DETEMIR

REACTIONS (8)
  - Incorrect product storage [Unknown]
  - Gallbladder pain [Unknown]
  - Hepatic pain [Unknown]
  - Spleen disorder [Unknown]
  - Blood glucose increased [Unknown]
  - Pancreatic disorder [Unknown]
  - Vomiting [Unknown]
  - Swelling [Unknown]

NARRATIVE: CASE EVENT DATE: 201606
